FAERS Safety Report 5153122-4 (Version None)
Quarter: 2006Q4

REPORT INFORMATION
  Report Type: 
  Country: None (occurrence: None)
  Receive Date: 20061117
  Receipt Date: 20060811
  Transmission Date: 20070319
  Serious: Yes (Other)
  Sender: FDA-Public Use
  Company Number: GB-GLAXOSMITHKLINE-B0434209A

PATIENT
  Age: 1 Year
  Sex: Male

DRUGS (1)
  1. AMOXICILLIN [Suspect]
     Indication: EAR INFECTION
     Dosage: 125MG THREE TIMES PER DAY
     Route: 048
     Dates: start: 20060620, end: 20060627

REACTIONS (3)
  - HYPERSENSITIVITY [None]
  - RASH [None]
  - SWELLING FACE [None]
